FAERS Safety Report 5519770-4 (Version None)
Quarter: 2007Q4

REPORT INFORMATION
  Report Type: 
  Country: None (occurrence: None)
  Receive Date: 20071116
  Receipt Date: 20070810
  Transmission Date: 20080405
  Serious: No
  Sender: FDA-Public Use
  Company Number: A0669471A

PATIENT
  Age: 66 Year
  Sex: Female

DRUGS (5)
  1. COREG CR [Suspect]
     Indication: HYPERTENSION
     Route: 048
     Dates: start: 20070601
  2. TEKTURNA [Concomitant]
  3. ATACAND [Concomitant]
  4. MINOXIDIL [Concomitant]
     Dosage: 12.5MG TWICE PER DAY
  5. ASPIRIN [Concomitant]

REACTIONS (4)
  - CONSTIPATION [None]
  - FATIGUE [None]
  - FLATULENCE [None]
  - SOMNOLENCE [None]
